FAERS Safety Report 7108450-X (Version None)
Quarter: 2010Q4

REPORT INFORMATION
  Report Type: 
  Country: None (occurrence: None)
  Receive Date: 20101117
  Receipt Date: 20101110
  Transmission Date: 20110411
  Serious: Yes (Hospitalization)
  Sender: FDA-Public Use
  Company Number: B0683707A

PATIENT
  Age: 31 Year
  Sex: Male

DRUGS (3)
  1. CLAMOXYL [Suspect]
     Indication: NASOPHARYNGITIS
     Dosage: 500MG TWICE PER DAY
     Route: 048
     Dates: start: 20100914, end: 20100930
  2. DOLIPRANE [Suspect]
     Indication: NASOPHARYNGITIS
     Dosage: 500MG UNKNOWN
     Route: 048
     Dates: start: 20100914, end: 20100930
  3. MAGNE B6 [Suspect]
     Indication: PRODUCT USED FOR UNKNOWN INDICATION
     Route: 048
     Dates: start: 20100930, end: 20101005

REACTIONS (2)
  - PRURITUS [None]
  - RASH MACULO-PAPULAR [None]
